FAERS Safety Report 10401110 (Version 1)
Quarter: 2014Q3

REPORT INFORMATION
  Report Type: Spontaneous
  Country: BR (occurrence: BR)
  Receive Date: 20140822
  Receipt Date: 20140822
  Transmission Date: 20150326
  Serious: Yes (Death)
  Sender: FDA-Public Use
  Company Number: BR-ROCHE-1452433

PATIENT
  Age: 82 Year
  Sex: Female

DRUGS (2)
  1. METALYSE [Suspect]
     Active Substance: TENECTEPLASE
     Indication: THROMBOLYSIS
     Route: 065
  2. HEPARINA [Suspect]
     Active Substance: HEPARIN SODIUM
     Indication: THROMBOLYSIS
     Route: 065

REACTIONS (1)
  - Haemorrhage [Fatal]
